FAERS Safety Report 25178549 (Version 3)
Quarter: 2025Q2

REPORT INFORMATION
  Report Type: Report from Study
  Country: GB (occurrence: GB)
  Receive Date: 20250409
  Receipt Date: 20250527
  Transmission Date: 20250717
  Serious: Yes (Hospitalization)
  Sender: UCB
  Company Number: GB-UCBSA-2025020208

PATIENT
  Age: 29 Year
  Sex: Male
  Weight: 65.7 kg

DRUGS (6)
  1. BIMEKIZUMAB [Suspect]
     Active Substance: BIMEKIZUMAB
     Indication: Axial spondyloarthritis
     Dosage: 160 MILLIGRAM, MONTHLY (QM)
     Route: 058
     Dates: start: 20241104, end: 20250324
  2. ZOPICLONE [Concomitant]
     Active Substance: ZOPICLONE
     Indication: Sleep disorder
     Dosage: 7.5 MILLIGRAM, ONCE DAILY (QD)
  3. OMEPRAZOLE [Concomitant]
     Active Substance: OMEPRAZOLE
     Indication: Prophylaxis
     Dosage: 20 MILLIGRAM, ONCE DAILY (QD)
  4. ACETAMINOPHEN [Concomitant]
     Active Substance: ACETAMINOPHEN
     Indication: Headache
  5. ETORICOXIB [Concomitant]
     Active Substance: ETORICOXIB
     Dosage: 60 MILLIGRAM, ONCE DAILY (QD)
     Dates: start: 20240402
  6. CODEINE [Concomitant]
     Active Substance: CODEINE
     Indication: Product used for unknown indication

REACTIONS (1)
  - Colitis ulcerative [Recovering/Resolving]

NARRATIVE: CASE EVENT DATE: 20250320
